FAERS Safety Report 9686684 (Version 2)
Quarter: 2013Q4

REPORT INFORMATION
  Report Type: Other
  Country: US (occurrence: US)
  Receive Date: 20131113
  Receipt Date: 20131113
  Transmission Date: 20140711
  Serious: Yes (Hospitalization, Other)
  Sender: FDA-Public Use
  Company Number: US-ACORDA-ACO_38905_2013

PATIENT
  Sex: Male
  Weight: 83.9 kg

DRUGS (5)
  1. AMPYRA [Suspect]
     Indication: GAIT DISTURBANCE
     Dosage: 10 MG, BID
     Route: 048
     Dates: start: 2012, end: 2013
  2. BACLOFEN [Concomitant]
     Indication: PRODUCT USED FOR UNKNOWN INDICATION
     Dosage: 20 MG, QID
  3. TEGRETOL [Concomitant]
     Indication: PRODUCT USED FOR UNKNOWN INDICATION
     Dosage: 200 MG, QID
  4. JALYN [Concomitant]
     Indication: PRODUCT USED FOR UNKNOWN INDICATION
     Dosage: UNK
  5. COPAXONE [Concomitant]
     Indication: MULTIPLE SCLEROSIS
     Dosage: 20 MG, QD
     Route: 058

REACTIONS (3)
  - Cystitis [Recovered/Resolved]
  - Abasia [Not Recovered/Not Resolved]
  - Drug ineffective [Not Recovered/Not Resolved]
